FAERS Safety Report 8917274 (Version 1)
Quarter: 2012Q4

REPORT INFORMATION
  Report Type: Report from Study
  Country: US (occurrence: US)
  Receive Date: 20121120
  Receipt Date: 20121120
  Transmission Date: 20130627
  Serious: Yes (Other)
  Sender: FDA-Public Use
  Company Number: US-ABBOTT-12P-163-1007926-00

PATIENT
  Age: 20 None
  Sex: Female
  Weight: 49.94 kg

DRUGS (1)
  1. LUPRON DEPOT [Suspect]
     Indication: ENDOMETRIOSIS
     Dosage: lot and exp not available
     Route: 030
     Dates: start: 20120913

REACTIONS (2)
  - Ovarian cyst [Recovering/Resolving]
  - Pain [Recovering/Resolving]
